FAERS Safety Report 20678717 (Version 4)
Quarter: 2022Q3

REPORT INFORMATION
  Report Type: Spontaneous
  Country: JP (occurrence: JP)
  Receive Date: 20220406
  Receipt Date: 20220712
  Transmission Date: 20221027
  Serious: Yes (Death, Life-Threatening, Hospitalization, Other)
  Sender: FDA-Public Use
  Company Number: JP-ELI_LILLY_AND_COMPANY-JP202204000660

PATIENT
  Age: 73 Year
  Sex: Male
  Weight: 79 kg

DRUGS (8)
  1. CYRAMZA [Suspect]
     Active Substance: RAMUCIRUMAB
     Indication: Gastric cancer
     Dosage: 540 MG
     Route: 041
     Dates: start: 20220128, end: 20220318
  2. PACLITAXEL [Suspect]
     Active Substance: PACLITAXEL
     Indication: Gastric cancer
     Dosage: 100 MG, CYCLICAL
     Route: 041
     Dates: start: 20220128, end: 20220318
  3. GRANISETRON [Concomitant]
     Active Substance: GRANISETRON
     Indication: Prophylaxis of nausea and vomiting
     Dosage: 3 MG, CYCLICAL
     Route: 041
     Dates: start: 20220128
  4. DECADRON [Concomitant]
     Active Substance: DEXAMETHASONE
     Indication: Prophylaxis of nausea and vomiting
     Dosage: 6.6 MG, CYCLICAL
     Route: 041
  5. GASTER [Concomitant]
     Active Substance: FAMOTIDINE
     Indication: Allergy prophylaxis
     Dosage: 20 MG, CYCLICAL
     Route: 041
     Dates: start: 20220128
  6. POLARAMINE [Concomitant]
     Active Substance: DEXCHLORPHENIRAMINE MALEATE
     Indication: Allergy prophylaxis
     Dosage: 5 MG, CYCLICAL
     Route: 041
     Dates: start: 20220128
  7. TORSEMIDE [Concomitant]
     Active Substance: TORSEMIDE
     Indication: Oedema
     Dosage: 8 MG
     Route: 048
     Dates: start: 20220307, end: 20220322
  8. NEXIUM [Concomitant]
     Active Substance: ESOMEPRAZOLE MAGNESIUM
     Indication: Prophylaxis against gastrointestinal ulcer
     Dosage: 20 MG, DAILY
     Route: 048
     Dates: start: 20211029, end: 20220322

REACTIONS (7)
  - Septic shock [Fatal]
  - Disseminated intravascular coagulation [Fatal]
  - White blood cell count decreased [Fatal]
  - Bacterial infection [Unknown]
  - Imaging procedure abnormal [Unknown]
  - Oedema peripheral [Unknown]
  - Hypoalbuminaemia [Unknown]

NARRATIVE: CASE EVENT DATE: 20220216
